FAERS Safety Report 25820802 (Version 1)
Quarter: 2025Q3

REPORT INFORMATION
  Report Type: Spontaneous
  Country: PR (occurrence: PR)
  Receive Date: 20250919
  Receipt Date: 20250919
  Transmission Date: 20251021
  Serious: Yes (Other)
  Sender: ABBVIE
  Company Number: PR-ABBVIE-6461305

PATIENT
  Age: 60 Year
  Sex: Female

DRUGS (1)
  1. CEFTAROLINE FOSAMIL [Suspect]
     Active Substance: CEFTAROLINE FOSAMIL
     Indication: Sepsis
     Route: 042

REACTIONS (5)
  - Anaphylactic reaction [Unknown]
  - Leukocytosis [Unknown]
  - Acute generalised exanthematous pustulosis [Unknown]
  - Acute kidney injury [Unknown]
  - Shock [Unknown]
